FAERS Safety Report 6077845-8 (Version None)
Quarter: 2009Q1

REPORT INFORMATION
  Report Type: 
  Country: None (occurrence: None)
  Receive Date: 20090213
  Receipt Date: 20090130
  Transmission Date: 20090719
  Serious: Yes (Death, Other)
  Sender: FDA-Public Use
  Company Number: US-ELI_LILLY_AND_COMPANY-US200901001314

PATIENT
  Age: 67 Year
  Sex: Female
  Weight: 51.247 kg

DRUGS (1)
  1. FORTEO [Suspect]
     Indication: OSTEOPOROSIS
     Dosage: 20 UG, DAILY (1/D)
     Dates: start: 20071001

REACTIONS (3)
  - ACUTE RESPIRATORY FAILURE [None]
  - CHRONIC RESPIRATORY FAILURE [None]
  - WEIGHT DECREASED [None]
